FAERS Safety Report 4956411-9 (Version None)
Quarter: 2006Q1

REPORT INFORMATION
  Report Type: 
  Country: None (occurrence: None)
  Receive Date: 20060329
  Receipt Date: 20060320
  Transmission Date: 20060701
  Serious: Yes (Hospitalization)
  Sender: FDA-Public Use
  Company Number: 2006SE01633

PATIENT
  Age: 32941 Day
  Sex: Male

DRUGS (1)
  1. CASODEX [Suspect]
     Indication: PROSTATE CANCER
     Route: 048
     Dates: start: 20051220, end: 20060220

REACTIONS (2)
  - PROCTITIS ULCERATIVE [None]
  - RECTAL HAEMORRHAGE [None]
